FAERS Safety Report 17566796 (Version 1)
Quarter: 2020Q1

REPORT INFORMATION
  Report Type: Spontaneous
  Country: US (occurrence: US)
  Receive Date: 20200316
  Receipt Date: 20200316
  Transmission Date: 20200409
  Serious: Yes (Hospitalization)
  Sender: FDA-Public Use
  Company Number: None

PATIENT
  Age: 56 Year
  Sex: Male

DRUGS (2)
  1. VINBLASTATINE SULF MDV 1MG/ML APP/FRESENIUS KABI [Suspect]
     Active Substance: VINBLASTINE SULFATE
     Indication: HODGKIN^S DISEASE NODULAR SCLEROSIS
     Dosage: ?          OTHER FREQUENCY:13 MG ON DAY 1 AND;?
     Route: 042
     Dates: start: 2020
  2. DACARBAZINE SDV 200MG/VL [Suspect]
     Active Substance: DACARBAZINE
     Indication: HODGKIN^S DISEASE NODULAR SCLEROSIS
     Dosage: ?          OTHER FREQUENCY:84 MG ON DAY 1 AND;?
     Route: 042
     Dates: start: 2020

REACTIONS (2)
  - Dehydration [None]
  - Blood potassium decreased [None]

NARRATIVE: CASE EVENT DATE: 20200301
